FAERS Safety Report 9603134 (Version 2)
Quarter: 2013Q4

REPORT INFORMATION
  Report Type: Spontaneous
  Country: JP (occurrence: JP)
  Receive Date: 20131007
  Receipt Date: 20131007
  Transmission Date: 20140711
  Serious: Yes (Hospitalization, Other)
  Sender: FDA-Public Use
  Company Number: JP-BAYER-2013-058094

PATIENT
  Age: 62 Year
  Sex: Male
  Weight: 62 kg

DRUGS (12)
  1. NEXAVAR [Suspect]
     Indication: RENAL CELL CARCINOMA
     Dosage: 400 MG, BID
     Route: 048
     Dates: start: 20130501, end: 20130503
  2. NEXAVAR [Suspect]
     Indication: RENAL CELL CARCINOMA
     Dosage: 400 MG, QOD
     Route: 048
     Dates: start: 20130509
  3. HIRUDOID [Concomitant]
     Route: 061
  4. NOVOLIN R [Concomitant]
  5. GLIMEPIRIDE [Concomitant]
     Route: 048
  6. AMLODIPINE [Concomitant]
     Route: 048
  7. ARTIST [Concomitant]
     Route: 048
  8. FUROSEMIDE [Concomitant]
     Route: 048
  9. SPIRONOLACTONE [Concomitant]
     Route: 048
  10. DOXAZOSIN [Concomitant]
     Route: 048
  11. RENIVEZE [Concomitant]
     Route: 048
  12. AMOBAN [Concomitant]
     Route: 048

REACTIONS (2)
  - Amylase increased [Recovered/Resolved]
  - Blood albumin decreased [Unknown]
